FAERS Safety Report 7540581-2 (Version None)
Quarter: 2011Q2

REPORT INFORMATION
  Report Type: 
  Country: None (occurrence: None)
  Receive Date: 20110610
  Receipt Date: 20110607
  Transmission Date: 20111010
  Serious: Yes (Hospitalization)
  Sender: FDA-Public Use
  Company Number: B0725210A

PATIENT
  Sex: Female
  Weight: 88 kg

DRUGS (9)
  1. DOCETAXEL [Suspect]
     Indication: BREAST CANCER
     Route: 065
  2. HERCEPTIN [Suspect]
     Indication: BREAST CANCER
     Route: 065
  3. NEULASTA [Concomitant]
     Dosage: 6MG PER DAY
     Route: 058
     Dates: start: 20110310
  4. LANSOPRAZOLE [Concomitant]
     Dosage: 30MG PER DAY
     Route: 048
     Dates: start: 20110310
  5. LAPATINIB [Suspect]
     Indication: BREAST CANCER
     Route: 065
  6. CARBOPLATIN [Suspect]
     Indication: BREAST CANCER
     Route: 065
  7. CYCLIZINE [Concomitant]
     Dosage: 150MG PER DAY
     Route: 048
     Dates: start: 20110325
  8. IMODIUM [Concomitant]
     Dosage: 16MG PER DAY
     Route: 048
  9. QUININE SULFATE [Concomitant]
     Dosage: 300MG PER DAY
     Route: 048
     Dates: start: 20110429

REACTIONS (4)
  - NEUTROPENIA [None]
  - DIARRHOEA [None]
  - VOMITING [None]
  - DEHYDRATION [None]
